FAERS Safety Report 9580912 (Version 3)
Quarter: 2013Q4

REPORT INFORMATION
  Report Type: Spontaneous
  Country: US (occurrence: US)
  Receive Date: 20131002
  Receipt Date: 20131029
  Transmission Date: 20140711
  Serious: No
  Sender: FDA-Public Use
  Company Number: US-PFIZER INC-2013277745

PATIENT
  Age: 77 Year
  Sex: Female
  Weight: 95.24 kg

DRUGS (4)
  1. LYRICA [Suspect]
     Indication: POSTOPERATIVE CARE
     Dosage: 50 MG, 2X/DAY
     Route: 048
     Dates: start: 20130920
  2. OMEPRAZOLE [Suspect]
     Indication: GASTRIC DISORDER
     Dosage: 20 MG, DAILY
  3. OMEPRAZOLE [Suspect]
     Indication: HERNIA
  4. LEVOTHYROXINE SODIUM [Concomitant]
     Indication: POSTOPERATIVE CARE
     Dosage: 125 MG, DAILY

REACTIONS (3)
  - Dizziness [Recovering/Resolving]
  - Somnolence [Recovering/Resolving]
  - Cold sweat [Recovering/Resolving]
